FAERS Safety Report 7575119-7 (Version None)
Quarter: 2011Q2

REPORT INFORMATION
  Report Type: 
  Country: None (occurrence: None)
  Receive Date: 20110627
  Receipt Date: 20110616
  Transmission Date: 20111010
  Serious: Yes (Hospitalization, Other)
  Sender: FDA-Public Use
  Company Number: US-ASTRAZENECA-2011SE37023

PATIENT
  Age: 65 Year
  Sex: Male

DRUGS (3)
  1. OMEPRAZOLE [Concomitant]
  2. NEXIUM [Suspect]
     Route: 048
  3. MAALOX [Concomitant]

REACTIONS (16)
  - ABDOMINAL DISCOMFORT [None]
  - RETCHING [None]
  - BARRETT'S OESOPHAGUS [None]
  - DYSPHAGIA [None]
  - DRUG DOSE OMISSION [None]
  - CONVULSION [None]
  - HIATUS HERNIA [None]
  - GASTRIC DISORDER [None]
  - MALAISE [None]
  - DEHYDRATION [None]
  - OESOPHAGEAL DISORDER [None]
  - IMPAIRED GASTRIC EMPTYING [None]
  - DISABILITY [None]
  - ABDOMINAL OPERATION [None]
  - CARDIAC OPERATION [None]
  - BEZOAR [None]
